FAERS Safety Report 9419119 (Version 2)
Quarter: 2015Q4

REPORT INFORMATION
  Report Type: Report from Study
  Country: US (occurrence: US)
  Receive Date: 20130725
  Receipt Date: 20151223
  Transmission Date: 20160305
  Serious: Yes (Death, Other)
  Sender: FDA-Public Use
  Company Number: US-ASTELLAS-2013US006953

PATIENT
  Sex: Female

DRUGS (2)
  1. ERLOTINIB [Suspect]
     Active Substance: ERLOTINIB
     Indication: NON-SMALL CELL LUNG CANCER
     Route: 048
     Dates: start: 20130329
  2. ERLOTINIB [Suspect]
     Active Substance: ERLOTINIB
     Route: 048

REACTIONS (2)
  - Acute respiratory failure [Fatal]
  - Neoplasm malignant [Fatal]
